FAERS Safety Report 5730643-4 (Version None)
Quarter: 2008Q2

REPORT INFORMATION
  Report Type: 
  Country: None (occurrence: None)
  Receive Date: 20080502
  Receipt Date: 20080422
  Transmission Date: 20081010
  Serious: Yes (Hospitalization, Other)
  Sender: FDA-Public Use
  Company Number: 2008AP001064

PATIENT
  Age: 5 Month
  Sex: Male

DRUGS (3)
  1. APO-PAROXETINE        (PAROXETINE HYDROCHLORIDE) [Suspect]
     Indication: PANIC DISORDER WITH AGORAPHOBIA
     Dosage: 20 MG; CAP; TRPL; QD
     Route: 064
     Dates: start: 20070101, end: 20070101
  2. XANAX [Suspect]
     Indication: PANIC DISORDER WITH AGORAPHOBIA
     Dosage: 0.50 MG;TAB;TRPL;PRN; 0.25 MG; TAB; TRPL; PRN; 0.25 MG; PRN; TRPL
     Route: 064
     Dates: start: 20070101, end: 20070101
  3. XANAX [Suspect]
     Indication: PANIC DISORDER WITH AGORAPHOBIA
     Dosage: 0.50 MG;TAB;TRPL;PRN; 0.25 MG; TAB; TRPL; PRN; 0.25 MG; PRN; TRPL
     Route: 064
     Dates: start: 20070101, end: 20071120

REACTIONS (3)
  - CONGENITAL ANOMALY [None]
  - DRUG EXPOSURE DURING PREGNANCY [None]
  - VENTRICULAR SEPTAL DEFECT [None]
